FAERS Safety Report 23823211 (Version 1)
Quarter: 2024Q2

REPORT INFORMATION
  Report Type: Spontaneous
  Country: CN (occurrence: CN)
  Receive Date: 20240507
  Receipt Date: 20240507
  Transmission Date: 20240716
  Serious: Yes (Other)
  Sender: FDA-Public Use
  Company Number: CN-NOVOPROD-1212852

PATIENT
  Sex: Female

DRUGS (6)
  1. NOVOLIN R [Suspect]
     Active Substance: INSULIN HUMAN
     Indication: Type 2 diabetes mellitus
     Dosage: 6-10 U EACH TIME(3-4 TIMES/DAY)(DOSE WAS ADJUSTED ACCORDING TO THE BLOOD GLUCOSE LEVELS)
  2. NOVOLIN R [Suspect]
     Active Substance: INSULIN HUMAN
     Dosage: DOSE WAS ADJUSTED ACCORDING TO THE BLOOD GLUCOSE LEVELS
  3. NOVOLIN R [Suspect]
     Active Substance: INSULIN HUMAN
     Indication: Type 2 diabetes mellitus
     Dosage: 6-10 U EACH TIME(3-4 TIMES/DAY)(DOSE WAS ADJUSTED ACCORDING TO THE BLOOD GLUCOSE LEVELS)
  4. NOVOLIN R [Suspect]
     Active Substance: INSULIN HUMAN
     Dosage: DOSE WAS ADJUSTED ACCORDING TO THE BLOOD GLUCOSE LEVELS
  5. NOVOLIN R [Suspect]
     Active Substance: INSULIN HUMAN
     Indication: Type 2 diabetes mellitus
     Dosage: UNK
  6. NOVOLIN N [Suspect]
     Active Substance: INSULIN HUMAN
     Indication: Type 2 diabetes mellitus
     Dosage: UNK

REACTIONS (7)
  - Retinal disorder [Unknown]
  - Hypoaesthesia [Unknown]
  - Back pain [Unknown]
  - Renal disorder [Unknown]
  - Cerebrovascular insufficiency [Unknown]
  - Tachycardia [Unknown]
  - Blood glucose increased [Unknown]
